FAERS Safety Report 7420174-8 (Version None)
Quarter: 2011Q2

REPORT INFORMATION
  Report Type: 
  Country: None (occurrence: None)
  Receive Date: 20110418
  Receipt Date: 20110404
  Transmission Date: 20111010
  Serious: Yes (Other)
  Sender: FDA-Public Use
  Company Number: US-ENDO PHARMACEUTICALS INC.-OPIR20110014

PATIENT
  Sex: Male

DRUGS (1)
  1. OPANA [Suspect]
     Dosage: UNKNOWN
     Route: 048

REACTIONS (1)
  - OVERDOSE [None]
